FAERS Safety Report 25269591 (Version 2)
Quarter: 2025Q2

REPORT INFORMATION
  Report Type: Spontaneous
  Country: FR (occurrence: FR)
  Receive Date: 20250505
  Receipt Date: 20250509
  Transmission Date: 20250716
  Serious: Yes (Other)
  Sender: MYLAN
  Company Number: FR-MYLANLABS-2025M1037665

PATIENT
  Age: 28 Year
  Sex: Male

DRUGS (8)
  1. CLOZAPINE [Suspect]
     Active Substance: CLOZAPINE
     Indication: Product used for unknown indication
  2. CLOZAPINE [Suspect]
     Active Substance: CLOZAPINE
  3. CLOZAPINE [Suspect]
     Active Substance: CLOZAPINE
  4. CLOZAPINE [Suspect]
     Active Substance: CLOZAPINE
     Dosage: 200 MILLIGRAM, QD (DAILY)
     Dates: start: 202504
  5. ABILIFY [Concomitant]
     Active Substance: ARIPIPRAZOLE
  6. ABILIFY [Concomitant]
     Active Substance: ARIPIPRAZOLE
  7. ATARAX [Concomitant]
     Active Substance: HYDROXYZINE HYDROCHLORIDE
  8. OXAZEPAM [Concomitant]
     Active Substance: OXAZEPAM

REACTIONS (3)
  - Hypoacusis [Recovering/Resolving]
  - Feeling abnormal [Recovering/Resolving]
  - White blood cell count increased [Not Recovered/Not Resolved]

NARRATIVE: CASE EVENT DATE: 20250401
